FAERS Safety Report 4863132-X (Version None)
Quarter: 2005Q4

REPORT INFORMATION
  Report Type: 
  Country: None (occurrence: None)
  Receive Date: 20051201
  Receipt Date: 20051017
  Transmission Date: 20060501
  Serious: No
  Sender: FDA-Public Use
  Company Number: 32780

PATIENT

DRUGS (2)
  1. NEVANAC [Suspect]
     Indication: UVEITIS
  2. BETA BLOCKER [Concomitant]

REACTIONS (1)
  - INTRAOCULAR PRESSURE INCREASED [None]
